FAERS Safety Report 7267866-1 (Version None)
Quarter: 2011Q1

REPORT INFORMATION
  Report Type: 
  Country: None (occurrence: None)
  Receive Date: 20110201
  Receipt Date: 20110125
  Transmission Date: 20110831
  Serious: Yes (Other)
  Sender: FDA-Public Use
  Company Number: CN-ROCHE-755300

PATIENT
  Age: 30 Year
  Sex: Female

DRUGS (2)
  1. TEMOZOLOMIDE [Concomitant]
     Indication: METASTATIC MALIGNANT MELANOMA
     Dosage: SMALL DOSE.
  2. AVASTIN [Suspect]
     Indication: METASTATIC MALIGNANT MELANOMA
     Route: 065

REACTIONS (2)
  - BLOOD BILIRUBIN INCREASED [None]
  - TRANSAMINASES INCREASED [None]
